FAERS Safety Report 10272634 (Version 2)
Quarter: 2014Q3

REPORT INFORMATION
  Report Type: Spontaneous
  Country: US (occurrence: None)
  Receive Date: 20140630
  Receipt Date: 20140724
  Transmission Date: 20150326
  Serious: Yes (Death, Other)
  Sender: FDA-Public Use
  Company Number: 2014AP003495

PATIENT
  Age: 57 Year
  Sex: Male
  Weight: 85.7 kg

DRUGS (21)
  1. ALLOPURINOL (ALLOPURINOL) [Concomitant]
     Active Substance: ALLOPURINOL
  2. LACTATED RINGERS (CALCIUM CHLORIDE, POTASSIUM CHLORIDE, SODIUM LACTATE) [Concomitant]
  3. CEFAZOLIN (CEFALOZIN) [Concomitant]
  4. BUPIVACAINE (BUPIVACAINE) INJECTION [Concomitant]
     Active Substance: BUPIVACAINE
  5. PAXIL [Suspect]
     Active Substance: PAROXETINE HYDROCHLORIDE
     Indication: STRESS
     Route: 048
     Dates: start: 20100710, end: 201007
  6. COLCHICINE (COLCHICINE) [Concomitant]
     Active Substance: COLCHICINE
  7. ONDANSETRON. [Concomitant]
     Active Substance: ONDANSETRON
  8. MIDAZOLAM [Concomitant]
     Active Substance: MIDAZOLAM\MIDAZOLAM HYDROCHLORIDE
  9. NORCO (HYDROCODONE BITARTRATE, PARACETAMOL) [Concomitant]
  10. LEVOFLOXACIN (LEVOFLOXACIN) [Concomitant]
     Active Substance: LEVOFLOXACIN
  11. LIDOCAINE (LIDOCAINE) [Concomitant]
     Active Substance: LIDOCAINE
  12. FENTANYL (FENTANYL) [Concomitant]
     Active Substance: FENTANYL
  13. PAXIL [Suspect]
     Active Substance: PAROXETINE HYDROCHLORIDE
     Indication: DEPRESSION
     Route: 048
     Dates: start: 20100710, end: 201007
  14. PAXIL [Suspect]
     Active Substance: PAROXETINE HYDROCHLORIDE
     Indication: ANXIETY
     Route: 048
     Dates: start: 20100710, end: 201007
  15. NACL (SODIUM CHLORIDE) [Concomitant]
  16. TYLENOL /00020001/ (PARACETAMOL) [Concomitant]
  17. NAPROSYN /00256201/ (NAPROXEN) [Concomitant]
  18. HYDROMORPHONE (HYDROMORPHONE) [Concomitant]
     Active Substance: HYDROMORPHONE
  19. LEVAQUIN [Concomitant]
     Active Substance: LEVOFLOXACIN
  20. SERTRALINE [Concomitant]
     Active Substance: SERTRALINE HYDROCHLORIDE
  21. DILAUDID [Concomitant]
     Active Substance: HYDROMORPHONE HYDROCHLORIDE

REACTIONS (8)
  - Crying [None]
  - Fear [None]
  - Multiple injuries [None]
  - Completed suicide [None]
  - Suicidal ideation [None]
  - Drug ineffective [None]
  - Anxiety [None]
  - Depression [None]

NARRATIVE: CASE EVENT DATE: 20100712
